APPROVED DRUG PRODUCT: PINDOLOL
Active Ingredient: PINDOLOL
Strength: 5MG
Dosage Form/Route: TABLET;ORAL
Application: A074437 | Product #001
Applicant: WATSON LABORATORIES INC
Approved: Feb 27, 1995 | RLD: No | RS: No | Type: DISCN